FAERS Safety Report 24024346 (Version 1)
Quarter: 2024Q2

REPORT INFORMATION
  Report Type: Spontaneous
  Country: ES (occurrence: ES)
  Receive Date: 20240627
  Receipt Date: 20240627
  Transmission Date: 20240716
  Serious: No
  Sender: FDA-Public Use
  Company Number: ES-ROCHE-3578828

PATIENT
  Age: 66 Year
  Sex: Female

DRUGS (3)
  1. VABYSMO [Suspect]
     Active Substance: FARICIMAB\FARICIMAB-SVOA
     Indication: Neovascular age-related macular degeneration
     Dosage: 3RD ON 15/MAY/2024.
     Route: 065
     Dates: start: 20240312
  2. VABYSMO [Suspect]
     Active Substance: FARICIMAB\FARICIMAB-SVOA
     Route: 065
     Dates: start: 20240410
  3. EYLEA [Concomitant]
     Active Substance: AFLIBERCEPT
     Dosage: 45 INJECTION
     Dates: start: 2016

REACTIONS (2)
  - Iridocyclitis [Unknown]
  - Vitritis [Unknown]
